FAERS Safety Report 9591989 (Version 1)
Quarter: 2013Q4

REPORT INFORMATION
  Report Type: Spontaneous
  Country: DE (occurrence: DE)
  Receive Date: 20131004
  Receipt Date: 20131004
  Transmission Date: 20140711
  Serious: Yes (Death, Other)
  Sender: FDA-Public Use
  Company Number: DE-009507513-1309DEU013302

PATIENT
  Age: 54 Year
  Sex: Female

DRUGS (1)
  1. TEMODAL [Suspect]
     Indication: GLIOBLASTOMA
     Dosage: UNK
     Route: 041
     Dates: start: 20130612, end: 20130630

REACTIONS (2)
  - Neoplasm progression [Fatal]
  - Thrombocytopenia [Not Recovered/Not Resolved]
